FAERS Safety Report 20837171 (Version 8)
Quarter: 2023Q1

REPORT INFORMATION
  Report Type: Report from Study
  Country: US (occurrence: US)
  Receive Date: 20220517
  Receipt Date: 20230325
  Transmission Date: 20230418
  Serious: Yes (Hospitalization, Other)
  Sender: FDA-Public Use
  Company Number: US-ABBVIE-22K-163-4396346-00

PATIENT
  Sex: Male

DRUGS (3)
  1. IMBRUVICA [Suspect]
     Active Substance: IBRUTINIB
     Indication: Chronic lymphocytic leukaemia
     Route: 048
     Dates: start: 20210527
  2. INSULIN NOS [Concomitant]
     Active Substance: INSULIN NOS
     Indication: Product used for unknown indication
  3. INSULIN NOS [Concomitant]
     Active Substance: INSULIN NOS
     Indication: Product used for unknown indication

REACTIONS (21)
  - Cardiac disorder [Unknown]
  - Blood potassium decreased [Unknown]
  - Blood magnesium decreased [Unknown]
  - Sinusitis [Unknown]
  - Precancerous condition [Unknown]
  - Urinary retention [Unknown]
  - Prostate infection [Unknown]
  - Hypertension [Unknown]
  - Dysphagia [Unknown]
  - Chest pain [Unknown]
  - Skin disorder [Unknown]
  - Hypotension [Recovered/Resolved]
  - Blood iron decreased [Unknown]
  - Fungal infection [Unknown]
  - Cerebrovascular accident [Unknown]
  - Peripheral swelling [Unknown]
  - Urinary tract infection [Unknown]
  - Contusion [Unknown]
  - Depression [Unknown]
  - Pneumonia [Unknown]
  - Unevaluable event [Unknown]
